FAERS Safety Report 6835523-9 (Version None)
Quarter: 2010Q3

REPORT INFORMATION
  Report Type: 
  Country: None (occurrence: None)
  Receive Date: 20100713
  Receipt Date: 20100630
  Transmission Date: 20110219
  Serious: Yes (Hospitalization)
  Sender: FDA-Public Use
  Company Number: PHHY2009CA39079

PATIENT
  Sex: Female

DRUGS (14)
  1. EXJADE [Suspect]
     Indication: MYELODYSPLASTIC SYNDROME
     Dosage: 1500 MG, QD
     Route: 048
     Dates: start: 20090101
  2. EXJADE [Suspect]
     Indication: IRON OVERLOAD
     Dosage: 1500 MG, QD
     Route: 048
     Dates: start: 20090205, end: 20100429
  3. EPREX [Concomitant]
     Dosage: 60000 UNITS/ WEEK
     Route: 058
  4. OXAZEPAM [Concomitant]
     Indication: ANXIETY
     Dosage: 15 MG, BID
     Route: 048
  5. OXAZEPAM [Concomitant]
     Dosage: 30 MG, BID
  6. PREVACID [Concomitant]
     Indication: DYSPEPSIA
     Dosage: 1 DF, QD
     Route: 048
  7. ACTONEL [Concomitant]
     Indication: OSTEOPOROSIS
     Dosage: 35 MG, UNK
  8. BLOOD TRANSFUSION, AUXILIARY PRODUCTS [Concomitant]
     Dosage: UNK
  9. LISINOPRIL [Concomitant]
     Dosage: 20 MG DAILY
     Route: 048
  10. ATACAND [Concomitant]
  11. ZOPICLONE [Concomitant]
     Dosage: 7.5 MG, UNK
     Route: 048
  12. RISEDRONATE SODIUM [Concomitant]
     Dosage: 35 MG DAILY
     Route: 048
  13. ATICAN [Concomitant]
     Indication: BLOOD PRESSURE
  14. TYLENOL (CAPLET) [Concomitant]
     Indication: PAIN

REACTIONS (19)
  - BOWEL MOVEMENT IRREGULARITY [None]
  - DEEP VEIN THROMBOSIS [None]
  - DIARRHOEA [None]
  - DYSPEPSIA [None]
  - FLUID OVERLOAD [None]
  - FLUID RETENTION [None]
  - GASTRITIS [None]
  - GASTROINTESTINAL HAEMORRHAGE [None]
  - HAEMOGLOBIN DECREASED [None]
  - HAEMORRHAGE [None]
  - MUSCLE STRAIN [None]
  - OEDEMA PERIPHERAL [None]
  - OSTEOPOROSIS [None]
  - PAIN [None]
  - PULMONARY HYPERTENSION [None]
  - SWELLING [None]
  - THROAT IRRITATION [None]
  - THROMBOCYTOPENIA [None]
  - WEIGHT INCREASED [None]
